FAERS Safety Report 20705342 (Version 3)
Quarter: 2022Q2

REPORT INFORMATION
  Report Type: Other
  Country: RU (occurrence: None)
  Receive Date: 20220413
  Receipt Date: 20220428
  Transmission Date: 20220721
  Serious: Yes (Other)
  Sender: FDA-Public Use
  Company Number: RU-Merck Healthcare KGaA-9311539

PATIENT
  Age: 68 Year
  Sex: Female

DRUGS (1)
  1. METFORMIN [Suspect]
     Active Substance: METFORMIN HYDROCHLORIDE
     Indication: Type 2 diabetes mellitus

REACTIONS (7)
  - Peripheral sensory neuropathy [Recovering/Resolving]
  - Peripheral motor neuropathy [Recovering/Resolving]
  - Subacute combined cord degeneration [Recovering/Resolving]
  - Blood homocysteine increased [Recovering/Resolving]
  - Vitamin B1 decreased [Unknown]
  - Blood folate decreased [Unknown]
  - Vitamin B12 decreased [Recovering/Resolving]
